FAERS Safety Report 10264623 (Version 1)
Quarter: 2014Q2

REPORT INFORMATION
  Report Type: Spontaneous
  Country: US (occurrence: None)
  Receive Date: 20140624
  Receipt Date: 20140624
  Transmission Date: 20141212
  Serious: Yes (Disabling, Other)
  Sender: FDA-Public Use
  Company Number: 201406027

PATIENT
  Age: 58 Year
  Sex: Male

DRUGS (2)
  1. TESTOPEL [Suspect]
     Indication: BLOOD TESTOSTERONE DECREASED
  2. ANDROGEL [Suspect]
     Indication: BLOOD TESTOSTERONE DECREASED

REACTIONS (7)
  - Cerebrovascular accident [None]
  - Impaired work ability [None]
  - Pain [None]
  - Anxiety [None]
  - Emotional distress [None]
  - Injury [None]
  - Economic problem [None]
